FAERS Safety Report 5655067-X (Version None)
Quarter: 2008Q1

REPORT INFORMATION
  Report Type: 
  Country: None (occurrence: None)
  Receive Date: 20080307
  Receipt Date: 20071114
  Transmission Date: 20080703
  Serious: No
  Sender: FDA-Public Use
  Company Number: A0694487A

PATIENT
  Age: 56 Year
  Sex: Female

DRUGS (11)
  1. REQUIP [Suspect]
     Indication: PERIODIC LIMB MOVEMENT DISORDER
     Route: 048
     Dates: start: 20070101
  2. HYDROCODONE BITARTRATE [Concomitant]
  3. WELLBUTRIN XL [Concomitant]
  4. CYMBALTA [Concomitant]
  5. VYTORIN [Concomitant]
  6. ESTROGEL [Concomitant]
  7. NEXIUM [Concomitant]
  8. ZYRTEC [Concomitant]
  9. DIOVAN [Concomitant]
  10. TYLENOL (CAPLET) [Concomitant]
  11. AMBIEN [Concomitant]

REACTIONS (3)
  - EYE SWELLING [None]
  - INSOMNIA [None]
  - SWELLING FACE [None]
